FAERS Safety Report 5724321-5 (Version None)
Quarter: 2008Q2

REPORT INFORMATION
  Report Type: 
  Country: None (occurrence: None)
  Receive Date: 20080430
  Receipt Date: 20080418
  Transmission Date: 20081010
  Serious: Yes (Hospitalization, Other)
  Sender: FDA-Public Use
  Company Number: FR-PFIZER INC-2008016312

PATIENT
  Sex: Male
  Weight: 64 kg

DRUGS (14)
  1. LYRICA [Suspect]
     Indication: NEURALGIA
     Route: 048
     Dates: start: 20080111, end: 20080101
  2. SEROPRAM [Suspect]
     Indication: DEPRESSION
     Route: 048
     Dates: start: 20080117, end: 20080101
  3. ACTISKENAN [Suspect]
     Indication: MUSCULOSKELETAL PAIN
     Dates: start: 20080111, end: 20080101
  4. SEROPRAM [Concomitant]
  5. AERIUS [Concomitant]
     Route: 048
  6. ACTISKENAN [Concomitant]
  7. KETOCONAZOLE [Concomitant]
  8. SODIUM CHLORIDE [Concomitant]
     Route: 058
     Dates: start: 20080107
  9. POTASSIUM BICARBONATE [Concomitant]
     Dates: start: 20080107
  10. OFLOXACIN [Concomitant]
     Dates: start: 20071231, end: 20080118
  11. AMOXI-CLAVULANICO [Concomitant]
     Dates: start: 20071231, end: 20080118
  12. INDAPAMIDE [Concomitant]
     Dates: start: 20071227, end: 20080117
  13. ALFUZOSIN HCL [Concomitant]
     Dates: start: 20071220
  14. CARTEOLOL HYDROCHLORIDE [Concomitant]

REACTIONS (4)
  - BRONCHOPNEUMONIA [None]
  - LEUKOPENIA [None]
  - NEUTROPENIA [None]
  - SEPSIS [None]
